FAERS Safety Report 6904005-8 (Version None)
Quarter: 2010Q3

REPORT INFORMATION
  Report Type: 
  Country: None (occurrence: None)
  Receive Date: 20100804
  Receipt Date: 20090304
  Transmission Date: 20110219
  Serious: No
  Sender: FDA-Public Use
  Company Number: US-PFIZER INC-2009179187

PATIENT
  Sex: Female
  Weight: 75.7 kg

DRUGS (3)
  1. LYRICA [Suspect]
     Indication: EPILEPSY
     Dosage: 75 MG, 1X/DAY
     Dates: start: 20090101
  2. TRILEPTAL [Concomitant]
     Dosage: UNK
  3. TOPAMAX [Concomitant]
     Indication: EPILEPSY
     Dosage: UNK
     Dates: end: 20090101

REACTIONS (2)
  - ABDOMINAL DISTENSION [None]
  - WEIGHT INCREASED [None]
